FAERS Safety Report 21695324 (Version 2)
Quarter: 2023Q2

REPORT INFORMATION
  Report Type: Spontaneous
  Country: US (occurrence: US)
  Receive Date: 20221207
  Receipt Date: 20230602
  Transmission Date: 20230722
  Serious: No
  Sender: FDA-Public Use
  Company Number: US-ALLERGAN-2217493US

PATIENT
  Sex: Female
  Weight: 52.16 kg

DRUGS (2)
  1. LO LOESTRIN FE [Suspect]
     Active Substance: ETHINYL ESTRADIOL\NORETHINDRONE ACETATE
     Indication: Hormone replacement therapy
     Dosage: 10 ?G, QD
     Route: 048
     Dates: start: 2013
  2. ADVIL [Concomitant]
     Active Substance: IBUPROFEN
     Indication: Pain
     Route: 048

REACTIONS (2)
  - Off label use [Unknown]
  - Product administration error [Unknown]
